FAERS Safety Report 6435339-1 (Version None)
Quarter: 2009Q4

REPORT INFORMATION
  Report Type: 
  Country: None (occurrence: None)
  Receive Date: 20091110
  Receipt Date: 20091026
  Transmission Date: 20100525
  Serious: Yes (Hospitalization, Other)
  Sender: FDA-Public Use
  Company Number: CA-GENENTECH-293387

PATIENT
  Age: 14 Year
  Sex: Male

DRUGS (7)
  1. RITUXIMAB [Suspect]
     Indication: FOCAL SEGMENTAL GLOMERULOSCLEROSIS
     Dosage: 375 MG/M2, UNK
  2. MYCOPHENOLATE MOFETIL [Suspect]
     Indication: NEPHROTIC SYNDROME
  3. CYCLOPHOSPHAMIDE [Suspect]
     Indication: NEPHROTIC SYNDROME
  4. LEVAMISOL [Suspect]
     Indication: NEPHROTIC SYNDROME
  5. CYCLOSPORINE [Suspect]
     Indication: NEPHROTIC SYNDROME
  6. PREDNISONE [Suspect]
     Indication: NEPHROTIC SYNDROME
  7. TACROLIMUS [Suspect]
     Indication: NEPHROTIC SYNDROME

REACTIONS (11)
  - ACNE [None]
  - ADRENAL INSUFFICIENCY [None]
  - CUSHINGOID [None]
  - FATIGUE [None]
  - GINGIVAL HYPERPLASIA [None]
  - HIRSUTISM [None]
  - HYPERTENSION [None]
  - NEPHROTIC SYNDROME [None]
  - PYREXIA [None]
  - TACHYCARDIA [None]
  - TRAUMATIC LUNG INJURY [None]
